FAERS Safety Report 7841425-1 (Version None)
Quarter: 2011Q4

REPORT INFORMATION
  Report Type: 
  Country: None (occurrence: None)
  Receive Date: 20111025
  Receipt Date: 20111019
  Transmission Date: 20120403
  Serious: Yes (Other)
  Sender: FDA-Public Use
  Company Number: UA-JNJFOC-20111009208

PATIENT
  Age: 54 Year
  Sex: Male
  Weight: 110 kg

DRUGS (3)
  1. XARELTO [Suspect]
     Indication: VENA CAVA THROMBOSIS
     Route: 048
     Dates: start: 20110920, end: 20111014
  2. DALTEPARIN SODIUM [Concomitant]
     Dates: start: 20110904, end: 20110919
  3. GEMZAR [Concomitant]

REACTIONS (2)
  - VISUAL ACUITY REDUCED [None]
  - RETINAL HAEMORRHAGE [None]
